FAERS Safety Report 21312253 (Version 1)
Quarter: 2022Q3

REPORT INFORMATION
  Report Type: Spontaneous
  Country: US (occurrence: None)
  Receive Date: 20220909
  Receipt Date: 20220909
  Transmission Date: 20221027
  Serious: No
  Sender: FDA-Public Use
  Company Number: US-ARIS GLOBAL-202205-0863

PATIENT
  Age: 75 Year
  Sex: Female

DRUGS (12)
  1. OXERVATE [Suspect]
     Active Substance: CENEGERMIN-BKBJ
     Indication: Neurotrophic keratopathy
     Route: 047
     Dates: start: 20220503
  2. LIPITOR [Concomitant]
     Active Substance: ATORVASTATIN CALCIUM
  3. CITALOPRAM [Concomitant]
     Active Substance: CITALOPRAM HYDROBROMIDE
  4. METHENAMINE HIPPURATE [Concomitant]
     Active Substance: METHENAMINE HIPPURATE
  5. LOSARTAN POTASSIUM [Concomitant]
     Active Substance: LOSARTAN POTASSIUM
  6. VASCEPA [Concomitant]
     Active Substance: ICOSAPENT ETHYL
  7. TOPROL XL [Concomitant]
     Active Substance: METOPROLOL SUCCINATE
     Dosage: 24 HOURS EXTENDED RELEASE.
  8. GABAPENTIN [Concomitant]
     Active Substance: GABAPENTIN
  9. TOPAMAX [Concomitant]
     Active Substance: TOPIRAMATE
  10. METFORMIN [Concomitant]
     Active Substance: METFORMIN HYDROCHLORIDE
     Dosage: EXTENDED RELEASE OSMOTIC
  11. LUMIGAN [Concomitant]
     Active Substance: BIMATOPROST
  12. RESTASIS [Concomitant]
     Active Substance: CYCLOSPORINE

REACTIONS (3)
  - Eye pain [Unknown]
  - Ocular hyperaemia [Unknown]
  - Eye irritation [Unknown]

NARRATIVE: CASE EVENT DATE: 20220501
